FAERS Safety Report 22041395 (Version 1)
Quarter: 2023Q1

REPORT INFORMATION
  Report Type: Spontaneous
  Country: US (occurrence: None)
  Receive Date: 20230224
  Receipt Date: 20230224
  Transmission Date: 20230418
  Serious: No
  Sender: FDA-Public Use
  Company Number: None

PATIENT
  Sex: Female

DRUGS (1)
  1. OPSUMIT [Suspect]
     Active Substance: MACITENTAN
     Indication: Pulmonary hypertension
     Dosage: 10 MG ONCE DAILY BY MOUTH
     Route: 048
     Dates: start: 20221110

REACTIONS (5)
  - Muscle twitching [None]
  - Ear discomfort [None]
  - Feeling abnormal [None]
  - Pain [None]
  - Ascites [None]
